FAERS Safety Report 16945739 (Version 2)
Quarter: 2019Q4

REPORT INFORMATION
  Report Type: Report from Study
  Country: BR (occurrence: BR)
  Receive Date: 20191022
  Receipt Date: 20191104
  Transmission Date: 20200122
  Serious: Yes (Death, Other)
  Sender: FDA-Public Use
  Company Number: BR-INCYTE CORPORATION-2019IN010423

PATIENT

DRUGS (2)
  1. JAKAVI [Suspect]
     Active Substance: RUXOLITINIB
     Indication: PRODUCT USED FOR UNKNOWN INDICATION
     Dosage: 5 MG, DAILY
     Route: 048
     Dates: start: 20190208
  2. JAKAVI [Suspect]
     Active Substance: RUXOLITINIB
     Dosage: 20 MG, DAILY
     Route: 048

REACTIONS (15)
  - Pulmonary oedema [Unknown]
  - Ascites [Unknown]
  - Confusional state [Unknown]
  - Infection [Unknown]
  - Dysstasia [Unknown]
  - Pyrexia [Unknown]
  - Cough [Unknown]
  - General physical health deterioration [Unknown]
  - Death [Fatal]
  - Hepatomegaly [Not Recovered/Not Resolved]
  - Malaise [Unknown]
  - Splenomegaly [Unknown]
  - Dysphagia [Unknown]
  - Pneumonia [Unknown]
  - Asthenia [Unknown]

NARRATIVE: CASE EVENT DATE: 20190310
